FAERS Safety Report 9789611 (Version 1)
Quarter: 2013Q4

REPORT INFORMATION
  Report Type: Spontaneous
  Country: DE (occurrence: DE)
  Receive Date: 20131231
  Receipt Date: 20131231
  Transmission Date: 20140711
  Serious: Yes (Other)
  Sender: FDA-Public Use
  Company Number: DE-BRISTOL-MYERS SQUIBB COMPANY-19931617

PATIENT
  Age: 81 Year
  Sex: Female

DRUGS (1)
  1. ABILIFY TABS 10 MG [Suspect]
     Indication: SCHIZOPHRENIA
     Dosage: INITIAL DOSE:10MG FOR 6 WKS
     Route: 048

REACTIONS (1)
  - Schizophrenia [Not Recovered/Not Resolved]
